FAERS Safety Report 4800125-2 (Version None)
Quarter: 2005Q4

REPORT INFORMATION
  Report Type: 
  Country: None (occurrence: None)
  Receive Date: 20051017
  Receipt Date: 20050922
  Transmission Date: 20060501
  Serious: Yes (Other)
  Sender: FDA-Public Use
  Company Number: J200503219

PATIENT
  Age: 47 Year
  Sex: Female

DRUGS (5)
  1. SAWACILLIN [Suspect]
     Dosage: 750MG PER DAY
     Route: 048
     Dates: start: 20050910, end: 20050910
  2. DASEN [Suspect]
     Dosage: 10MG PER DAY
     Route: 048
     Dates: start: 20050910, end: 20050910
  3. AZUNOL [Concomitant]
     Dates: start: 20050910, end: 20050910
  4. CEFAZOLIN [Concomitant]
     Route: 061
     Dates: start: 20050910, end: 20050910
  5. BETAMETHASONE SODIUM PHOSPHATE [Concomitant]
     Route: 061
     Dates: start: 20050910, end: 20050910

REACTIONS (10)
  - BODY TEMPERATURE INCREASED [None]
  - DRY SKIN [None]
  - ERYTHEMA [None]
  - EYELID FUNCTION DISORDER [None]
  - EYELID OEDEMA [None]
  - HOT FLUSH [None]
  - OEDEMA [None]
  - PHARYNGOLARYNGEAL PAIN [None]
  - PRURITUS [None]
  - SWELLING FACE [None]
